FAERS Safety Report 21979522 (Version 3)
Quarter: 2023Q4

REPORT INFORMATION
  Report Type: Report from Study
  Country: CA (occurrence: CA)
  Receive Date: 20230210
  Receipt Date: 20231017
  Transmission Date: 20240109
  Serious: Yes (Other)
  Sender: FDA-Public Use
  Company Number: CA-002147023-NVSC2022CA297217

PATIENT
  Age: 67 Year
  Sex: Female

DRUGS (1)
  1. MAYZENT [Suspect]
     Active Substance: SIPONIMOD
     Indication: Secondary progressive multiple sclerosis
     Dosage: 2 MG, QD
     Route: 048
     Dates: start: 20221219

REACTIONS (6)
  - Cataract [Not Recovered/Not Resolved]
  - Vision blurred [Recovering/Resolving]
  - Memory impairment [Unknown]
  - Peripheral swelling [Unknown]
  - Skin indentation [Unknown]
  - Hypertension [Unknown]

NARRATIVE: CASE EVENT DATE: 20230117
